FAERS Safety Report 9097914 (Version 1)
Quarter: 2013Q1

REPORT INFORMATION
  Report Type: Spontaneous
  Country: SE (occurrence: SE)
  Receive Date: 20130212
  Receipt Date: 20130212
  Transmission Date: 20140127
  Serious: Yes (Death)
  Sender: FDA-Public Use
  Company Number: SE-WATSON-2013-01820

PATIENT
  Age: 88 Year
  Sex: Male

DRUGS (1)
  1. ENALAPRIL MALEATE (UNKNOWN) [Suspect]
     Indication: PRODUCT USED FOR UNKNOWN INDICATION
     Dosage: UNK, UNKNOWN
     Route: 065

REACTIONS (2)
  - Angioedema [Fatal]
  - Oedema mouth [Fatal]
